FAERS Safety Report 13910265 (Version 1)
Quarter: 2017Q3

REPORT INFORMATION
  Report Type: Spontaneous
  Country: CA (occurrence: CA)
  Receive Date: 20170828
  Receipt Date: 20170828
  Transmission Date: 20171127
  Serious: Yes (Hospitalization)
  Sender: FDA-Public Use
  Company Number: CA-JNJFOC-20170817929

PATIENT
  Age: 69 Year
  Sex: Male
  Weight: 115 kg

DRUGS (7)
  1. HUMALOG [Concomitant]
     Active Substance: INSULIN LISPRO
     Route: 065
  2. INVOKANA [Suspect]
     Active Substance: CANAGLIFLOZIN
     Indication: TYPE 2 DIABETES MELLITUS
     Route: 048
  3. IRBESARTAN. [Concomitant]
     Active Substance: IRBESARTAN
     Route: 065
  4. METFORMIN [Concomitant]
     Active Substance: METFORMIN HYDROCHLORIDE
     Route: 065
  5. ATORVASTATIN CALCIUM. [Concomitant]
     Active Substance: ATORVASTATIN CALCIUM
     Route: 065
  6. ELTROXIN [Concomitant]
     Active Substance: LEVOTHYROXINE
     Route: 065
  7. LEVEMIR [Concomitant]
     Active Substance: INSULIN DETEMIR
     Route: 058

REACTIONS (14)
  - Chest X-ray abnormal [Recovered/Resolved]
  - Myalgia [Recovered/Resolved]
  - Thrombocytopenia [Recovered/Resolved]
  - Hypoxia [Recovered/Resolved]
  - Pain [Recovered/Resolved]
  - Condition aggravated [Recovered/Resolved]
  - Asthenia [Recovered/Resolved]
  - Viral infection [Recovered/Resolved]
  - Contusion [Recovered/Resolved]
  - Fatigue [Recovered/Resolved]
  - Blood lactate dehydrogenase increased [Recovered/Resolved]
  - Decreased appetite [Recovered/Resolved]
  - Inflammation [Recovered/Resolved]
  - Immune thrombocytopenic purpura [Recovered/Resolved]
